FAERS Safety Report 11442088 (Version 2)
Quarter: 2015Q3

REPORT INFORMATION
  Report Type: Spontaneous
  Country: US (occurrence: US)
  Receive Date: 20150901
  Receipt Date: 20150910
  Transmission Date: 20151125
  Serious: No
  Sender: FDA-Public Use
  Company Number: US-PFIZER INC-2015282911

PATIENT
  Age: 53 Year
  Sex: Female

DRUGS (4)
  1. RELPAX [Suspect]
     Active Substance: ELETRIPTAN HYDROBROMIDE
     Indication: MIGRAINE
     Dosage: 40 MG, 1X/DAY
  2. IBUPROFEN. [Concomitant]
     Active Substance: IBUPROFEN
     Indication: MIGRAINE
     Dosage: 600 MG, UNK (THREE OF THE THEM FOR A TOTAL OF 600MG, TAKEN ONE TIME FOR HER MIGRAINE LAST NIGHT)
  3. RELPAX [Suspect]
     Active Substance: ELETRIPTAN HYDROBROMIDE
     Dosage: 40 MG, 2X/DAY  (SOMETIMES)
  4. RELPAX [Suspect]
     Active Substance: ELETRIPTAN HYDROBROMIDE
     Dosage: UNK
     Dates: end: 201506

REACTIONS (3)
  - Drug ineffective [Unknown]
  - Condition aggravated [Unknown]
  - Headache [Not Recovered/Not Resolved]

NARRATIVE: CASE EVENT DATE: 20150820
